FAERS Safety Report 12448482 (Version 2)
Quarter: 2016Q3

REPORT INFORMATION
  Report Type: Report from Study
  Country: US (occurrence: US)
  Receive Date: 20160608
  Receipt Date: 20160808
  Transmission Date: 20161109
  Serious: Yes (Hospitalization, Other)
  Sender: FDA-Public Use
  Company Number: US-EISAI MEDICAL RESEARCH-EC-2016-016025

PATIENT
  Age: 75 Year
  Sex: Female
  Weight: 58.9 kg

DRUGS (3)
  1. LENVIMA [Suspect]
     Active Substance: LENVATINIB
     Indication: THYROID CANCER
     Route: 048
     Dates: start: 20160411, end: 20160525
  2. LENVIMA [Suspect]
     Active Substance: LENVATINIB
     Route: 048
     Dates: start: 2016, end: 20160627
  3. LENVIMA [Suspect]
     Active Substance: LENVATINIB
     Route: 048
     Dates: start: 20160628

REACTIONS (10)
  - Hypertension [Recovered/Resolved]
  - Gait disturbance [Recovered/Resolved]
  - Asthenia [Unknown]
  - Decreased appetite [Not Recovered/Not Resolved]
  - Dehydration [Unknown]
  - Pelvic neoplasm [Recovered/Resolved]
  - Vomiting [Recovering/Resolving]
  - Dry mouth [Recovered/Resolved]
  - Nausea [Recovering/Resolving]
  - Oral pain [Recovered/Resolved]

NARRATIVE: CASE EVENT DATE: 2016
